FAERS Safety Report 14967572 (Version 5)
Quarter: 2018Q3

REPORT INFORMATION
  Report Type: Report from Study
  Country: PA (occurrence: PA)
  Receive Date: 20180604
  Receipt Date: 20180808
  Transmission Date: 20181010
  Serious: Yes (Other)
  Sender: FDA-Public Use
  Company Number: PHHY2018PA013016

PATIENT
  Age: 59 Year
  Sex: Female

DRUGS (1)
  1. SANDOSTATIN LAR DEPOT [Suspect]
     Active Substance: OCTREOTIDE ACETATE
     Indication: PRODUCT USED FOR UNKNOWN INDICATION
     Dosage: 20 MG, UNK
     Route: 065
     Dates: start: 20180503

REACTIONS (18)
  - Diarrhoea [Unknown]
  - Diabetes mellitus [Unknown]
  - Neoplasm [Unknown]
  - Pain in extremity [Unknown]
  - Blood glucose fluctuation [Unknown]
  - Back pain [Unknown]
  - Abnormal faeces [Unknown]
  - Spinal disorder [Unknown]
  - Influenza [Unknown]
  - Gastrointestinal disorder [Not Recovered/Not Resolved]
  - Hepatic neoplasm [Unknown]
  - Fatigue [Unknown]
  - Irritable bowel syndrome [Unknown]
  - Malaise [Unknown]
  - Blood glucose increased [Unknown]
  - Gastric disorder [Unknown]
  - Gait disturbance [Unknown]
  - Hepatic mass [Unknown]
